FAERS Safety Report 4856272-2 (Version None)
Quarter: 2005Q4

REPORT INFORMATION
  Report Type: 
  Country: None (occurrence: None)
  Receive Date: 20051219
  Receipt Date: 20051215
  Transmission Date: 20060501
  Serious: Yes (Death)
  Sender: FDA-Public Use
  Company Number: US-BOEHRINGER INGELHEIM PHARMACEUTICALS, INC.-2005-BP-21502BP

PATIENT
  Sex: Male

DRUGS (1)
  1. APTIVUS [Suspect]
     Dosage: TPV/RTV:  500/200 MG BID
     Route: 048

REACTIONS (3)
  - DEATH [None]
  - HEPATIC HAEMORRHAGE [None]
  - HEPATITIS C POSITIVE [None]
